FAERS Safety Report 4578795-6 (Version None)
Quarter: 2005Q1

REPORT INFORMATION
  Report Type: 
  Country: None (occurrence: None)
  Receive Date: 20050211
  Receipt Date: 20050203
  Transmission Date: 20050727
  Serious: Yes (Other)
  Sender: FDA-Public Use
  Company Number: PHNU2005DE00824

PATIENT
  Sex: Female

DRUGS (1)
  1. LAMISIL [Suspect]
     Indication: ONYCHOMYCOSIS
     Route: 048
     Dates: end: 20050101

REACTIONS (3)
  - ARTHRALGIA [None]
  - C-REACTIVE PROTEIN INCREASED [None]
  - MYALGIA [None]
